FAERS Safety Report 4393231-0 (Version None)
Quarter: 2004Q3

REPORT INFORMATION
  Report Type: 
  Country: None (occurrence: None)
  Receive Date: 20040702
  Receipt Date: 20040623
  Transmission Date: 20050211
  Serious: Yes (Other)
  Sender: FDA-Public Use
  Company Number: AU-JNJFOC-20040600671

PATIENT
  Age: 87 Year
  Sex: Female

DRUGS (7)
  1. REMINYL [Suspect]
     Dosage: 4 MG, 2 IN 1 DAY, ORAL
     Route: 048
     Dates: start: 20040323, end: 20040420
  2. LOSEC (OMEPRAZOLE) [Concomitant]
  3. LIPITOR [Concomitant]
  4. DITROPAN [Concomitant]
  5. ASPIRIN [Concomitant]
  6. AMLODIPINE [Concomitant]
  7. ALENDRONATE (ALENDRONATE SODIUM) [Concomitant]

REACTIONS (6)
  - CONFUSIONAL STATE [None]
  - FEELING ABNORMAL [None]
  - HAEMATEMESIS [None]
  - HEPATITIS CHOLESTATIC [None]
  - PYREXIA [None]
  - URINARY TRACT INFECTION [None]
